FAERS Safety Report 25017231 (Version 1)
Quarter: 2025Q1

REPORT INFORMATION
  Report Type: Spontaneous
  Country: US (occurrence: None)
  Receive Date: 20250226
  Receipt Date: 20250226
  Transmission Date: 20250409
  Serious: Yes (Other)
  Sender: FDA-CTU
  Company Number: None

PATIENT
  Age: 70 Year
  Sex: Male

DRUGS (5)
  1. ABIRATERONE [Suspect]
     Active Substance: ABIRATERONE
     Indication: Prostate cancer
     Dosage: FREQUENCY : DAILY;?
     Route: 048
     Dates: start: 20240629, end: 20250204
  2. HYDROCHLOROTHIAZIDE [Concomitant]
     Active Substance: HYDROCHLOROTHIAZIDE
  3. Metoprolol Tartrate 100 mg tablet [Concomitant]
  4. PREDNISONE [Concomitant]
     Active Substance: PREDNISONE
  5. Xarelto 1O mg tablet [Concomitant]

REACTIONS (1)
  - Vomiting [None]

NARRATIVE: CASE EVENT DATE: 20250204
